FAERS Safety Report 14139353 (Version 1)
Quarter: 2017Q4

REPORT INFORMATION
  Report Type: Spontaneous
  Country: FR (occurrence: FR)
  Receive Date: 20171028
  Receipt Date: 20171028
  Transmission Date: 20180321
  Serious: Yes (Death)
  Sender: FDA-Public Use
  Company Number: FR-AUROBINDO-AUR-APL-2017-42404

PATIENT
  Age: 62 Year
  Sex: Male

DRUGS (10)
  1. LEPTICUR [Suspect]
     Active Substance: TROPATEPINE HYDROCHLORIDE
     Indication: SCHIZOPHRENIA
     Dosage: 10 MG, UNK
     Route: 048
     Dates: start: 20170715, end: 201708
  2. SECTRAL [Suspect]
     Active Substance: ACEBUTOLOL HYDROCHLORIDE
     Indication: HYPERTENSION
     Dosage: 200 MG, UNK
     Route: 048
     Dates: end: 201708
  3. METFORMIN ARROW FILM-COATED TABLET 850MG [Suspect]
     Active Substance: METFORMIN HYDROCHLORIDE
     Indication: DIABETES MELLITUS
     Dosage: 850 MG, TWO TIMES A DAY
     Route: 048
     Dates: end: 201708
  4. LOXAPAC                            /00401801/ [Suspect]
     Active Substance: LOXAPINE SUCCINATE
     Indication: SCHIZOPHRENIA
     Dosage: UNK
     Route: 048
     Dates: start: 20170713, end: 201708
  5. TAHOR [Suspect]
     Active Substance: ATORVASTATIN CALCIUM
     Indication: HYPERCHOLESTEROLAEMIA
     Dosage: 20 MG, DAILY
     Route: 048
     Dates: end: 201708
  6. RISPERIDONE ARROW FILM-COATED TABLETS [Suspect]
     Active Substance: RISPERIDONE
     Indication: SCHIZOPHRENIA
     Dosage: 6 MG, DAILY
     Route: 048
     Dates: start: 20170703, end: 201708
  7. PLAVIX [Suspect]
     Active Substance: CLOPIDOGREL BISULFATE
     Indication: ARTERIOGRAM CORONARY
     Dosage: 75 MG, DAILY
     Route: 048
     Dates: end: 201708
  8. SERESTA [Suspect]
     Active Substance: OXAZEPAM
     Indication: SCHIZOPHRENIA
     Dosage: 25 MG, DAILY
     Route: 048
     Dates: end: 201708
  9. KARDEGIC [Suspect]
     Active Substance: ASPIRIN DL-LYSINE
     Indication: ARTERIOGRAM CORONARY
     Dosage: 160 MG, DAILY
     Route: 048
     Dates: end: 201708
  10. PALIPERIDONA [Suspect]
     Active Substance: PALIPERIDONE
     Indication: SCHIZOPHRENIA
     Dosage: 525 MG, UNK
     Route: 030
     Dates: start: 20170615, end: 20170615

REACTIONS (1)
  - Death [Fatal]

NARRATIVE: CASE EVENT DATE: 201708
